FAERS Safety Report 23722623 (Version 2)
Quarter: 2024Q2

REPORT INFORMATION
  Report Type: Spontaneous
  Country: ES (occurrence: ES)
  Receive Date: 20240409
  Receipt Date: 20240423
  Transmission Date: 20240716
  Serious: Yes (Death, Life-Threatening)
  Sender: FDA-Public Use
  Company Number: None

PATIENT
  Age: 47 Year
  Sex: Female

DRUGS (9)
  1. PREGABALIN [Interacting]
     Active Substance: PREGABALIN
     Indication: Pain
     Dosage: 600 MILLIGRAM, QD
     Route: 048
     Dates: start: 2023, end: 20240226
  2. LEVOFLOXACIN [Interacting]
     Active Substance: LEVOFLOXACIN
     Indication: Respiratory tract infection
     Dosage: 500 MILLIGRAM, QD
     Route: 048
     Dates: start: 20240225, end: 20240226
  3. METHOCARBAMOL [Interacting]
     Active Substance: METHOCARBAMOL
     Indication: Pain
     Dosage: 500 MILLIGRAM, QD
     Route: 048
     Dates: start: 2023, end: 20240226
  4. CARBAMAZEPINE [Interacting]
     Active Substance: CARBAMAZEPINE
     Indication: Pain
     Dosage: 600 MILLIGRAM, QD
     Route: 048
     Dates: start: 2023, end: 20240226
  5. LIDOCAINE [Interacting]
     Active Substance: LIDOCAINE
     Indication: Pain
     Dosage: 370 MILLIGRAM, 2 TOTAL (100 AMPOULES X 10 ML)
     Route: 042
     Dates: start: 20240216, end: 20240223
  6. TRAMADOL HYDROCHLORIDE [Interacting]
     Active Substance: TRAMADOL HYDROCHLORIDE
     Indication: Pain
     Dosage: 150 MILLIGRAM, Q8H (20 CAPSULES)
     Route: 048
     Dates: start: 20240213, end: 20240226
  7. DIAZEPAM [Interacting]
     Active Substance: DIAZEPAM
     Indication: Pain
     Dosage: 10 MILLIGRAM, QD
     Route: 048
     Dates: start: 2023, end: 20240226
  8. TRAZODONE HYDROCHLORIDE [Interacting]
     Active Substance: TRAZODONE HYDROCHLORIDE
     Indication: Pain
     Dosage: 150 MILLIGRAM, QD
     Route: 048
     Dates: start: 2023, end: 20240226
  9. AMITRIPTYLINE HYDROCHLORIDE [Interacting]
     Active Substance: AMITRIPTYLINE HYDROCHLORIDE
     Indication: Pain
     Dosage: 50 MILLIGRAM, QD
     Route: 048
     Dates: start: 2023, end: 20240226

REACTIONS (4)
  - Sudden death [Fatal]
  - Respiratory depression [Recovered/Resolved]
  - Confusional state [Recovered/Resolved]
  - Drug interaction [Unknown]

NARRATIVE: CASE EVENT DATE: 20240224
